FAERS Safety Report 26073210 (Version 1)
Quarter: 2025Q4

REPORT INFORMATION
  Report Type: Report from Study
  Country: CA (occurrence: CA)
  Receive Date: 20251121
  Receipt Date: 20251121
  Transmission Date: 20260118
  Serious: Yes (Other)
  Sender: SAMSUNG BIOEPIS
  Company Number: CA-SAMSUNG BIOEPIS-SB-2025-37678

PATIENT
  Age: 48 Year
  Sex: Female
  Weight: 54 kg

DRUGS (4)
  1. RENFLEXIS [Suspect]
     Active Substance: INFLIXIMAB-ABDA
     Indication: Behcet^s syndrome
     Route: 042
     Dates: start: 20221215
  2. ESTROGENS [Concomitant]
     Active Substance: ESTROGENS
     Indication: Menopause
  3. ESTRADIOL [Concomitant]
     Active Substance: ESTRADIOL
     Indication: Menopause
     Dosage: ESTRADOT 25
  4. PROGESTERONE [Concomitant]
     Active Substance: PROGESTERONE
     Indication: Menopause
     Dosage: AT BEDTIME

REACTIONS (6)
  - Cystitis ulcerative [Unknown]
  - Gastritis [Unknown]
  - Blood potassium decreased [Unknown]
  - Fibromyalgia [Unknown]
  - Cystitis interstitial [Unknown]
  - Product use in unapproved indication [Unknown]

NARRATIVE: CASE EVENT DATE: 20250401
